FAERS Safety Report 12416853 (Version 1)
Quarter: 2016Q2

REPORT INFORMATION
  Report Type: Spontaneous
  Country: US (occurrence: US)
  Receive Date: 20160530
  Receipt Date: 20160530
  Transmission Date: 20160815
  Serious: Yes (Death, Other)
  Sender: FDA-Public Use
  Company Number: US-PFIZER INC-2016280437

PATIENT
  Age: 91 Year
  Sex: Male

DRUGS (5)
  1. POTASSIUM CL [Concomitant]
     Active Substance: POTASSIUM CHLORIDE
     Dosage: 10 MEQ, 1X/DAY
     Route: 048
  2. LYRICA [Suspect]
     Active Substance: PREGABALIN
     Indication: SPINAL COLUMN STENOSIS
     Dosage: 100MG CAPSULE TWO IN MORNING AND NIGHT
     Route: 048
     Dates: start: 2013
  3. AMLODIPINE BESILATE [Concomitant]
     Active Substance: AMLODIPINE BESYLATE
     Indication: BLOOD PRESSURE ABNORMAL
     Dosage: 5MG TABLET A DAY
     Route: 048
  4. LYRICA [Suspect]
     Active Substance: PREGABALIN
     Indication: NEURALGIA
     Dosage: 25MG CAPSULE ONE IN MORNING AND ONE AT NIGHT
     Route: 048
     Dates: start: 2013
  5. METOPROLOL TARTRATE. [Concomitant]
     Active Substance: METOPROLOL TARTRATE
     Indication: BLOOD PRESSURE ABNORMAL
     Dosage: 25MG TABLET SPLIT IN HALF ONCE IN MORNING AND ONCE AT NIGHT

REACTIONS (2)
  - Respiratory disorder [Fatal]
  - Arrhythmia [Unknown]
